FAERS Safety Report 7910641 (Version 2)
Quarter: 2017Q2

REPORT INFORMATION
  Report Type: Spontaneous
  Country: GB (occurrence: GB)
  Receive Date: 20110422
  Receipt Date: 20170413
  Transmission Date: 20170830
  Serious: Yes (Hospitalization)
  Sender: FDA-Public Use
  Company Number: GB-PFIZER INC-2011085940

PATIENT
  Age: 21 Year
  Sex: Female

DRUGS (4)
  1. MISOPROSTOL. [Suspect]
     Active Substance: MISOPROSTOL
     Indication: ABORTION INDUCED
     Dosage: 800 UG, 2X/DAY
     Dates: start: 20100606, end: 20100606
  2. GEMEPROST [Suspect]
     Active Substance: GEMEPROST
     Dosage: 5 DF, UNK
     Dates: start: 20100608
  3. MIFEGYNE [Suspect]
     Active Substance: MIFEPRISTONE
     Indication: ABORTION INDUCED
     Dosage: 200 MG, 1X/DAY
     Route: 048
     Dates: start: 20100604, end: 20100604
  4. MIFEGYNE [Suspect]
     Active Substance: MIFEPRISTONE
     Dosage: 600 MG, UNK
     Route: 048
     Dates: start: 20100606

REACTIONS (5)
  - Induced abortion failed [Unknown]
  - Drug administration error [Unknown]
  - Incorrect dose administered [Unknown]
  - Inappropriate schedule of drug administration [Unknown]
  - Drug ineffective for unapproved indication [Unknown]

NARRATIVE: CASE EVENT DATE: 201006
